FAERS Safety Report 10112285 (Version 2)
Quarter: 2014Q2

REPORT INFORMATION
  Report Type: Spontaneous
  Country: BR (occurrence: BR)
  Receive Date: 20140425
  Receipt Date: 20140605
  Transmission Date: 20141212
  Serious: Yes (Other)
  Sender: FDA-Public Use
  Company Number: PHHY2014BR050664

PATIENT
  Age: 67 Year
  Sex: Female

DRUGS (4)
  1. FORASEQ [Suspect]
     Indication: ASTHMA
     Dosage: UNK UKN, BID
     Route: 055
  2. SOTALOL [Suspect]
     Dosage: UNK UKN, UNK
  3. SYNTHROID [Suspect]
     Dosage: UNK UKN, UNK
  4. DIELOFT [Suspect]
     Dosage: UNK UKN, UNK

REACTIONS (5)
  - Breast mass [Not Recovered/Not Resolved]
  - Gait disturbance [Unknown]
  - Back pain [Unknown]
  - Device malfunction [Unknown]
  - Dyspnoea [Unknown]
